FAERS Safety Report 9548811 (Version 2)
Quarter: 2013Q4

REPORT INFORMATION
  Report Type: Spontaneous
  Country: CA (occurrence: None)
  Receive Date: 20130919
  Receipt Date: 20131101
  Transmission Date: 20140711
  Serious: Yes (Other)
  Sender: FDA-Public Use
  Company Number: VAL_02727_2013

PATIENT
  Age: 25 Year
  Sex: Female

DRUGS (2)
  1. METOPROLOL [Suspect]
     Indication: PHAEOCHROMOCYTOMA
     Dosage: (DF)
  2. PHENOXYBENZAMINE [Suspect]
     Indication: PRODUCT USED FOR UNKNOWN INDICATION

REACTIONS (2)
  - Caesarean section [None]
  - Phaeochromocytoma [None]
